FAERS Safety Report 9637836 (Version 1)
Quarter: 2013Q4

REPORT INFORMATION
  Report Type: Spontaneous
  Country: CN (occurrence: CN)
  Receive Date: 20131022
  Receipt Date: 20131022
  Transmission Date: 20140711
  Serious: Yes (Other)
  Sender: FDA-Public Use
  Company Number: CN-PFIZER INC-2013301066

PATIENT
  Sex: 0

DRUGS (1)
  1. DIFLUCAN [Suspect]
     Indication: DERMATOMYOSITIS

REACTIONS (5)
  - Off label use [Unknown]
  - Deafness [Unknown]
  - Diarrhoea [Unknown]
  - Vomiting [Unknown]
  - Tinnitus [Unknown]
